FAERS Safety Report 9721939 (Version 3)
Quarter: 2014Q1

REPORT INFORMATION
  Report Type: Report from Study
  Country: GB (occurrence: GB)
  Receive Date: 20131202
  Receipt Date: 20140207
  Transmission Date: 20141002
  Serious: Yes (Death, Hospitalization)
  Sender: FDA-Public Use
  Company Number: GB-ROCHE-1310635

PATIENT
  Age: 77 Year
  Sex: Male

DRUGS (14)
  1. RANIBIZUMAB [Suspect]
     Indication: AGE-RELATED MACULAR DEGENERATION
     Route: 050
     Dates: start: 20120621
  2. RANIBIZUMAB [Suspect]
     Route: 050
     Dates: start: 20130325
  3. RANIBIZUMAB [Suspect]
     Route: 050
     Dates: start: 20130501
  4. RANIBIZUMAB [Suspect]
     Route: 050
     Dates: start: 20130603
  5. RANIBIZUMAB [Suspect]
     Route: 050
     Dates: start: 20130722
  6. SERETIDE [Concomitant]
     Route: 065
     Dates: start: 2010
  7. SPIRIVA [Concomitant]
     Route: 065
     Dates: start: 1990
  8. ATORVASTATIN [Concomitant]
     Route: 065
     Dates: start: 1996
  9. OMACOR [Concomitant]
     Route: 065
     Dates: start: 2010
  10. ASPIRIN [Concomitant]
     Route: 065
     Dates: start: 2010
  11. TILDIEM [Concomitant]
     Route: 065
     Dates: start: 2010
  12. LISINOPRIL [Concomitant]
     Route: 065
     Dates: start: 1992
  13. BENDROFLUMETHIAZIDE [Concomitant]
     Route: 065
     Dates: start: 1992
  14. DOXAZOSIN [Concomitant]
     Route: 065
     Dates: start: 1992

REACTIONS (8)
  - Prostate cancer metastatic [Fatal]
  - Pneumonia [Fatal]
  - Sepsis [Fatal]
  - Rib fracture [Unknown]
  - Diastolic dysfunction [Unknown]
  - Aortic stenosis [Unknown]
  - Lower respiratory tract infection [Unknown]
  - Asthma [Unknown]
